FAERS Safety Report 7707204-0 (Version None)
Quarter: 2011Q3

REPORT INFORMATION
  Report Type: 
  Country: None (occurrence: None)
  Receive Date: 20110824
  Receipt Date: 20110809
  Transmission Date: 20111222
  Serious: Yes (Other)
  Sender: FDA-Public Use
  Company Number: PHHY2011US67051

PATIENT
  Sex: Male

DRUGS (7)
  1. ALPRAZOLAM [Concomitant]
     Dosage: 1 DF, BID (1 MG)
  2. ZITHROMAX [Concomitant]
     Dosage: EVERY OTHER MONTH
  3. NEBULIZER [Concomitant]
  4. VICODIN [Concomitant]
     Indication: PAIN
     Dosage: EVERY 6 HOURS
  5. METRONIDAZOLE [Concomitant]
  6. DIOVAN [Suspect]
     Dosage: 1 DF, QD
  7. PANTOPRAZOLE [Concomitant]
     Dosage: 40 MG, UNK

REACTIONS (6)
  - COLITIS [None]
  - SALMONELLOSIS [None]
  - GASTROOESOPHAGEAL REFLUX DISEASE [None]
  - LUNG DISORDER [None]
  - INTERVERTEBRAL DISC DEGENERATION [None]
  - SINUSITIS [None]
